FAERS Safety Report 22794392 (Version 4)
Quarter: 2024Q2

REPORT INFORMATION
  Report Type: Report from Study
  Country: US (occurrence: US)
  Receive Date: 20230807
  Receipt Date: 20240620
  Transmission Date: 20240715
  Serious: Yes (Hospitalization, Other)
  Sender: FDA-Public Use
  Company Number: US-HORIZON THERAPEUTICS-HZN-2023-003696

PATIENT
  Age: 26 Year
  Sex: Female

DRUGS (2)
  1. RAVICTI [Suspect]
     Active Substance: GLYCEROL PHENYLBUTYRATE
     Indication: Urea cycle disorder
     Dosage: FIRST DOSE
     Route: 048
     Dates: start: 20170509
  2. RAVICTI [Suspect]
     Active Substance: GLYCEROL PHENYLBUTYRATE
     Indication: Ornithine transcarbamoylase deficiency
     Dosage: 5.5 MILLILITER, TID (1.1 GM/ML)
     Route: 048
     Dates: start: 201707

REACTIONS (5)
  - Hyperammonaemia [Unknown]
  - Gallbladder disorder [Unknown]
  - Cholecystectomy [Unknown]
  - Clostridium test positive [Recovered/Resolved]
  - Malaise [Unknown]

NARRATIVE: CASE EVENT DATE: 20230101
